FAERS Safety Report 18830854 (Version 1)
Quarter: 2021Q1

REPORT INFORMATION
  Report Type: Other
  Country: IE (occurrence: IE)
  Receive Date: 20210203
  Receipt Date: 20210203
  Transmission Date: 20210419
  Serious: Yes (Other)
  Sender: FDA-Public Use
  Company Number: IE-CELLTRION INC.-2021IE000964

PATIENT

DRUGS (4)
  1. INFLIXIMAB (UNKNOWN) [Suspect]
     Active Substance: INFLIXIMAB
     Indication: COLITIS ULCERATIVE
     Dosage: REGULAR INFUSIONS
     Dates: start: 2014, end: 2019
  2. INFLIXIMAB (UNKNOWN) [Suspect]
     Active Substance: INFLIXIMAB
     Dosage: 5 MG/KG, 18/06/2020 AND 06/07/2020 GIVEN TWO WEEKS APART (LOADING DOSE 400MG)
     Route: 041
     Dates: start: 20200706
  3. INFLIXIMAB (UNKNOWN) [Suspect]
     Active Substance: INFLIXIMAB
     Dosage: 5 MG/KG, 18/06/2020 AND 06/07/2020 GIVEN TWO WEEKS APART (LOADING DOSE 400MG)
     Route: 042
     Dates: start: 20200618
  4. SALOFALK [Concomitant]
     Dosage: CONTINUING

REACTIONS (4)
  - Ocular hyperaemia [Recovered/Resolved]
  - Dyspnoea [Recovered/Resolved]
  - Erythema [Recovered/Resolved]
  - Chest discomfort [Recovered/Resolved]

NARRATIVE: CASE EVENT DATE: 20200706
